FAERS Safety Report 21399598 (Version 2)
Quarter: 2022Q4

REPORT INFORMATION
  Report Type: Spontaneous
  Country: DE (occurrence: DE)
  Receive Date: 20221001
  Receipt Date: 20221027
  Transmission Date: 20230113
  Serious: Yes (Hospitalization)
  Sender: FDA-Public Use
  Company Number: DE-ADRED-07615-01

PATIENT
  Age: 86 Year
  Sex: Male

DRUGS (12)
  1. AMLODIPINE [Suspect]
     Active Substance: AMLODIPINE BESYLATE
     Indication: Product used for unknown indication
     Dosage: 5 MILLIGRAM DAILY; 2.5 MG, BID (1-0-1-0) THERAPY START DATE : ASKU , THERAPY END DATE : ASKU
     Route: 065
  2. METOPROLOL [Suspect]
     Active Substance: METOPROLOL
     Indication: Product used for unknown indication
     Dosage: 3.9583 MICROGRAM DAILY; 47.5 UG, BID (47.5 G, 2-0-2-0), METOPROLOL SALT NOT SPECIFIED THERAPY START
     Route: 065
  3. RAMIPRIL [Suspect]
     Active Substance: RAMIPRIL
     Indication: Product used for unknown indication
     Dosage: 10 MILLIGRAM DAILY; 5 MG, BID (1-0-1-0), THERAPY START DATE : ASKU , THERAPY END DATE : ASKU
  4. TORSEMIDE [Suspect]
     Active Substance: TORSEMIDE
     Indication: Product used for unknown indication
     Dosage: 5 MILLIGRAM DAILY; 5 MG, QD (1-0-0-0) THERAPY START DATE : ASKU , THERAPY END DATE : ASKU
     Route: 065
  5. EZETIMIBE [Concomitant]
     Active Substance: EZETIMIBE
     Indication: Product used for unknown indication
     Dosage: 10 MILLIGRAM DAILY; 10 MG, QD (0-0-1-0)THERAPY START DATE : ASKU , THERAPY END DATE : ASKU
  6. APIXABAN [Concomitant]
     Active Substance: APIXABAN
     Indication: Product used for unknown indication
     Dosage: 10 MILLIGRAM DAILY; 5 MG, 1-0-1-0, UNIT DOSE : 5 MG,  THERAPY START DATE : ASKU , THERAPY END DATE :
  7. PANTOPRAZOLE [Concomitant]
     Active Substance: PANTOPRAZOLE
     Indication: Product used for unknown indication
     Dosage: 40 MILLIGRAM DAILY; 40 MG, QD (1-0-0-0) THERAPY START DATE : ASKU , THERAPY END DATE : ASKU
  8. CLOPIDOGREL [Concomitant]
     Active Substance: CLOPIDOGREL BISULFATE
     Indication: Product used for unknown indication
     Dosage: 75 MILLIGRAM DAILY; 75 MG, QD (0-0-1-0), THERAPY START DATE : ASKU , THERAPY END DATE : ASKU
  9. TAMSULOSIN [Concomitant]
     Active Substance: TAMSULOSIN
     Indication: Product used for unknown indication
     Dosage: .4 MILLIGRAM DAILY; 0.4 MG, QD (0-0-1-0),  UNIT DOSE :0.4 MG, THERAPY START DATE : ASKU , THERAPY EN
  10. ROSUVASTATIN [Concomitant]
     Active Substance: ROSUVASTATIN
     Indication: Product used for unknown indication
     Dosage: 20 MILLIGRAM DAILY; 20 MG, QD (0-0-1-0) THERAPY START DATE : ASKU , THERAPY END DATE : ASKU
  11. PIRACETAM [Concomitant]
     Active Substance: PIRACETAM
     Indication: Product used for unknown indication
     Dosage: 1200 MILLIGRAM DAILY; 1200 MG, QD (1-0-0-0)THERAPY START DATE : ASKU , THERAPY END DATE : ASKU
  12. ALLOPURINOL [Concomitant]
     Active Substance: ALLOPURINOL
     Indication: Product used for unknown indication
     Dosage: 150 MILLIGRAM DAILY; 150 MG, QD (1-0-0-0) THERAPY START DATE : ASKU , THERAPY END DATE : ASKU

REACTIONS (4)
  - Muscular weakness [Unknown]
  - Gait disturbance [Unknown]
  - Night sweats [Unknown]
  - Muscular weakness [Unknown]
